FAERS Safety Report 8407339-3 (Version None)
Quarter: 2012Q2

REPORT INFORMATION
  Report Type: 
  Country: None (occurrence: None)
  Receive Date: 20120604
  Receipt Date: 20120404
  Transmission Date: 20120825
  Serious: Yes (Hospitalization)
  Sender: FDA-Public Use
  Company Number: LB-ROCHE-1073721

PATIENT
  Age: 32 Year
  Sex: Male

DRUGS (1)
  1. ACTEMRA [Suspect]
     Indication: CRYOPYRIN ASSOCIATED PERIODIC SYNDROME
     Dates: start: 20120301

REACTIONS (1)
  - PANCREATITIS ACUTE [None]
